FAERS Safety Report 4844521-6 (Version None)
Quarter: 2005Q4

REPORT INFORMATION
  Report Type: 
  Country: None (occurrence: None)
  Receive Date: 20051203
  Receipt Date: 20050620
  Transmission Date: 20060501
  Serious: Yes (Hospitalization)
  Sender: FDA-Public Use
  Company Number: PHBS2005NL08837

PATIENT
  Age: 79 Year
  Sex: Female

DRUGS (6)
  1. GLEEVEC [Suspect]
  2. FOSAMAX [Concomitant]
     Indication: OSTEOPOROSIS
     Dosage: 70 MG, QD
  3. GLICLAZIDE [Concomitant]
     Indication: DIABETES MELLITUS NON-INSULIN-DEPENDENT
     Dosage: 160 MG/D
  4. ASPIRIN [Concomitant]
     Dosage: 80 MG, QD
  5. VALACYCLOVIR HCL [Concomitant]
     Dosage: 500 MG/D
  6. FLUCONAZOLE [Concomitant]
     Indication: PROPHYLAXIS
     Dosage: 200 MG/D

REACTIONS (4)
  - CRYPTOGENIC ORGANIZING PNEUMONIA [None]
  - HYPERSENSITIVITY [None]
  - HYPOXIA [None]
  - INTERSTITIAL LUNG DISEASE [None]
